FAERS Safety Report 7996072-8 (Version None)
Quarter: 2011Q4

REPORT INFORMATION
  Report Type: 
  Country: None (occurrence: None)
  Receive Date: 20111220
  Receipt Date: 20111212
  Transmission Date: 20120403
  Serious: Yes (Hospitalization, Other)
  Sender: FDA-Public Use
  Company Number: PHEH2007US01306

PATIENT
  Sex: Female
  Weight: 61.678 kg

DRUGS (9)
  1. GLEEVEC [Suspect]
     Indication: CHRONIC MYELOID LEUKAEMIA
     Dosage: 400 MG, QD
     Route: 048
     Dates: start: 20061214
  2. LORAZEPAM [Concomitant]
  3. GABAPENTIN [Concomitant]
     Dosage: 600 MG, UNK
  4. ALLOPURINOL [Concomitant]
     Indication: GOUT
     Route: 048
     Dates: start: 20061214
  5. MULTI-VITAMINS [Concomitant]
  6. NADOLOL [Concomitant]
     Dosage: 40 MG, UNK
  7. VITAMINE D3 [Concomitant]
  8. GLEEVEC [Suspect]
     Dosage: 400 MG, DAILY
     Route: 048
     Dates: start: 20080107
  9. CALCIUM [Concomitant]
     Dosage: 400 MG, UNK
     Route: 048

REACTIONS (9)
  - SUPRAVENTRICULAR TACHYCARDIA [None]
  - ANXIETY [None]
  - PALPITATIONS [None]
  - DRY EYE [None]
  - NAUSEA [None]
  - HEART RATE INCREASED [None]
  - FEELING ABNORMAL [None]
  - COUGH [None]
  - TACHYCARDIA [None]
